FAERS Safety Report 9868730 (Version 2)
Quarter: 2014Q1

REPORT INFORMATION
  Report Type: Report from Study
  Country: US (occurrence: US)
  Receive Date: 20140204
  Receipt Date: 20140307
  Transmission Date: 20141002
  Serious: No
  Sender: FDA-Public Use
  Company Number: US-US-EMD SERONO, INC.-7266116

PATIENT
  Sex: Male
  Weight: 29 kg

DRUGS (22)
  1. SAIZEN [(SOMATROPIN (RDNA ORIGIN) FOR INJECTION)] [Suspect]
     Indication: GROWTH HORMONE DEFICIENCY
     Route: 058
     Dates: start: 200706
  2. CLONIDINE [Concomitant]
     Indication: PRODUCT USED FOR UNKNOWN INDICATION
  3. ZYRTEC                             /00884302/ [Concomitant]
     Indication: PRODUCT USED FOR UNKNOWN INDICATION
  4. SINGULAIR                          /01362601/ [Concomitant]
     Indication: PRODUCT USED FOR UNKNOWN INDICATION
  5. NEXIUM                             /01479302/ [Concomitant]
     Indication: PRODUCT USED FOR UNKNOWN INDICATION
  6. CARNITOR [Concomitant]
     Indication: PRODUCT USED FOR UNKNOWN INDICATION
  7. VITAMIN C                          /00008001/ [Concomitant]
     Indication: PRODUCT USED FOR UNKNOWN INDICATION
  8. MAALOX                             /00082501/ [Concomitant]
     Indication: PRODUCT USED FOR UNKNOWN INDICATION
  9. PULMICORT [Concomitant]
     Indication: PRODUCT USED FOR UNKNOWN INDICATION
  10. ATROVENT [Concomitant]
     Indication: PRODUCT USED FOR UNKNOWN INDICATION
  11. CREON                              /00014701/ [Concomitant]
     Indication: PRODUCT USED FOR UNKNOWN INDICATION
  12. BACLOFEN [Concomitant]
     Indication: PRODUCT USED FOR UNKNOWN INDICATION
  13. FERROUS GLUCONATE [Concomitant]
     Indication: PRODUCT USED FOR UNKNOWN INDICATION
  14. MIRALAX [Concomitant]
     Indication: PRODUCT USED FOR UNKNOWN INDICATION
  15. RETIN A [Concomitant]
     Indication: PRODUCT USED FOR UNKNOWN INDICATION
  16. CLINDAMYCIN [Concomitant]
     Indication: PRODUCT USED FOR UNKNOWN INDICATION
  17. DIASTAT                            /00017001/ [Concomitant]
     Indication: CONVULSION
  18. GLUCAGON [Concomitant]
     Indication: PRODUCT USED FOR UNKNOWN INDICATION
  19. KETOCONAZOLE [Concomitant]
     Indication: PRODUCT USED FOR UNKNOWN INDICATION
  20. GASTROCROM [Concomitant]
     Indication: PRODUCT USED FOR UNKNOWN INDICATION
  21. POLY-VI-SOL                        /00200301/ [Concomitant]
     Indication: PRODUCT USED FOR UNKNOWN INDICATION
  22. GLUCAGON [Concomitant]
     Indication: BLOOD GLUCOSE DECREASED

REACTIONS (4)
  - Left ventricular hypertrophy [Unknown]
  - Excoriation [Unknown]
  - Scab [Unknown]
  - Acne [Unknown]
